FAERS Safety Report 9931464 (Version 3)
Quarter: 2014Q1

REPORT INFORMATION
  Report Type: Spontaneous
  Country: US (occurrence: US)
  Receive Date: 20140228
  Receipt Date: 20140321
  Transmission Date: 20141002
  Serious: Yes (Other)
  Sender: FDA-Public Use
  Company Number: US-BEH-2013038498

PATIENT
  Age: 29 Year
  Sex: Female

DRUGS (5)
  1. BERINERT [Suspect]
     Route: 042
     Dates: start: 20130926
  2. BERINERT [Suspect]
     Indication: HEREDITARY ANGIOEDEMA
     Dosage: 500 IU; SINCE 26-AUG-2013
     Route: 042
     Dates: start: 20131018, end: 20131018
  3. BERINERT [Suspect]
     Route: 042
  4. BERINERT [Suspect]
     Route: 042
     Dates: start: 20140205, end: 20140205
  5. CINRYZE [Suspect]

REACTIONS (5)
  - Hereditary angioedema [Recovered/Resolved]
  - Abdominal distension [Recovering/Resolving]
  - Drug effect incomplete [Unknown]
  - Malaise [Unknown]
  - Asthenia [Unknown]
